FAERS Safety Report 23188582 (Version 1)
Quarter: 2023Q4

REPORT INFORMATION
  Report Type: Spontaneous
  Country: US (occurrence: US)
  Receive Date: 20231115
  Receipt Date: 20231115
  Transmission Date: 20240110
  Serious: No
  Sender: FDA-Public Use
  Company Number: US-PFIZER INC-202300361870

PATIENT
  Age: 59 Year
  Sex: Female

DRUGS (15)
  1. XELJANZ XR [Suspect]
     Active Substance: TOFACITINIB CITRATE
     Dosage: 11 MG, DAILY
     Route: 048
     Dates: start: 20230509
  2. OTREXUP [Concomitant]
     Active Substance: METHOTREXATE
  3. DAYVIGO [Concomitant]
     Active Substance: LEMBOREXANT
  4. FUROSEMIDE [Concomitant]
     Active Substance: FUROSEMIDE
  5. LOSARTAN [Concomitant]
     Active Substance: LOSARTAN
  6. FOLIC ACID [Concomitant]
     Active Substance: FOLIC ACID
  7. MELOXICAM [Concomitant]
     Active Substance: MELOXICAM
  8. TRAMADOL [Concomitant]
     Active Substance: TRAMADOL\TRAMADOL HYDROCHLORIDE
  9. PAROXETINE [Concomitant]
     Active Substance: PAROXETINE
  10. MONTELUKAST [Concomitant]
     Active Substance: MONTELUKAST SODIUM
  11. DICLOFENAC [Concomitant]
     Active Substance: DICLOFENAC
  12. METHYLPREDNISOLONE [Concomitant]
     Active Substance: METHYLPREDNISOLONE
  13. PREGABALIN [Concomitant]
     Active Substance: PREGABALIN
  14. ROSUVASTATIN [Concomitant]
     Active Substance: ROSUVASTATIN
  15. LYRICA [Concomitant]
     Active Substance: PREGABALIN

REACTIONS (1)
  - Drug ineffective [Not Recovered/Not Resolved]

NARRATIVE: CASE EVENT DATE: 20230701
